FAERS Safety Report 10428278 (Version 2)
Quarter: 2014Q4

REPORT INFORMATION
  Report Type: Spontaneous
  Country: US (occurrence: None)
  Receive Date: 20140829
  Receipt Date: 20141208
  Transmission Date: 20150528
  Serious: Yes (Death, Other)
  Sender: FDA-Public Use
  Company Number: 153565

PATIENT
  Age: 71 Year
  Sex: Female
  Weight: 93.9 kg

DRUGS (1)
  1. DAUNORUBICIN HCL [Suspect]
     Active Substance: DAUNORUBICIN HYDROCHLORIDE
     Indication: ACUTE MYELOID LEUKAEMIA
     Route: 040
     Dates: start: 20140616, end: 20140618

REACTIONS (2)
  - Pneumonitis [None]
  - Bacterial infection [None]

NARRATIVE: CASE EVENT DATE: 20140701
